FAERS Safety Report 9672094 (Version 1)
Quarter: 2013Q4

REPORT INFORMATION
  Report Type: Spontaneous
  Country: RU (occurrence: RU)
  Receive Date: 20131106
  Receipt Date: 20131106
  Transmission Date: 20140711
  Serious: Yes (Life-Threatening, Hospitalization, Other)
  Sender: FDA-Public Use
  Company Number: RU-UCBSA-102106

PATIENT
  Sex: Male

DRUGS (5)
  1. KEPPRA [Suspect]
     Indication: PARTIAL SEIZURES
     Route: 048
     Dates: start: 201307, end: 201308
  2. KEPPRA [Suspect]
     Indication: PARTIAL SEIZURES
     Route: 048
     Dates: start: 201309
  3. CARBAMAZEPINE [Concomitant]
     Dosage: UNKNOWN
  4. DEPAKINE [Concomitant]
     Dosage: UNKNOWN
  5. TOPAMAX [Concomitant]
     Dosage: UNKNOWN

REACTIONS (3)
  - Suicide attempt [Recovered/Resolved]
  - Psychotic disorder [Unknown]
  - Salivary hypersecretion [Not Recovered/Not Resolved]
